FAERS Safety Report 9580016 (Version 1)
Quarter: 2013Q3

REPORT INFORMATION
  Report Type: Spontaneous
  Country: US (occurrence: None)
  Receive Date: 20130930
  Receipt Date: 20130930
  Transmission Date: 20140515
  Serious: Yes (Other)
  Sender: FDA-Public Use
  Company Number: None

PATIENT
  Age: 54 Year
  Sex: Male

DRUGS (1)
  1. NIASPAN ER [Suspect]
     Dosage: 1 TAB @ BEDTIME
     Route: 048

REACTIONS (5)
  - Flushing [None]
  - Pain [None]
  - Facial pain [None]
  - Pain of skin [None]
  - Generalised erythema [None]
